FAERS Safety Report 6872248-8 (Version None)
Quarter: 2010Q3

REPORT INFORMATION
  Report Type: 
  Country: None (occurrence: None)
  Receive Date: 20100723
  Receipt Date: 20100712
  Transmission Date: 20110219
  Serious: Yes (Hospitalization)
  Sender: FDA-Public Use
  Company Number: CH-ELI_LILLY_AND_COMPANY-CH201007001303

PATIENT
  Sex: Female

DRUGS (3)
  1. FORTEO [Suspect]
     Indication: OSTEOPOROSIS
     Dosage: 20 UG, DAILY (1/D)
     Route: 058
     Dates: start: 20100527
  2. LANSOPRAZOL [Concomitant]
     Indication: HIATUS HERNIA
     Dosage: 30 MG, DAILY (1/D)
     Route: 048
  3. PREDNISONE [Concomitant]
     Indication: MUSCULOSKELETAL PAIN
     Dosage: 10 MG, DAILY (1/D)
     Route: 048

REACTIONS (2)
  - FALL [None]
  - FEMUR FRACTURE [None]
